FAERS Safety Report 21654445 (Version 1)
Quarter: 2022Q4

REPORT INFORMATION
  Report Type: Report from Study
  Country: US (occurrence: US)
  Receive Date: 20221129
  Receipt Date: 20221129
  Transmission Date: 20230112
  Serious: No
  Sender: FDA-Public Use
  Company Number: US-ABBVIE-4181665

PATIENT
  Sex: Female

DRUGS (5)
  1. SKYRIZI [Suspect]
     Active Substance: RISANKIZUMAB-RZAA
     Indication: Product used for unknown indication
     Route: 058
  2. Moderna [Concomitant]
     Indication: COVID-19 immunisation
     Dosage: 1 IN 1 ONCE 1ST DOSE
     Route: 030
     Dates: start: 20210201, end: 20210201
  3. Moderna [Concomitant]
     Indication: COVID-19 immunisation
     Dosage: 1 IN 1 ONCE 2ND DOSE
     Route: 030
     Dates: start: 20210301, end: 20210301
  4. Pfizer/BioNTech [Concomitant]
     Indication: COVID-19 immunisation
     Dosage: 1 IN 1 ONCE 3RD BOOSTER DOSE
     Route: 030
     Dates: start: 20220108, end: 20220108
  5. CODEINE [Suspect]
     Active Substance: CODEINE
     Indication: Product used for unknown indication
     Route: 065

REACTIONS (4)
  - Depression [Unknown]
  - Cough [Recovering/Resolving]
  - Drug hypersensitivity [Unknown]
  - Emotional distress [Unknown]
